FAERS Safety Report 25596336 (Version 3)
Quarter: 2025Q3

REPORT INFORMATION
  Report Type: Spontaneous
  Country: US (occurrence: US)
  Receive Date: 20250723
  Receipt Date: 20250804
  Transmission Date: 20251021
  Serious: No
  Sender: ABBVIE
  Company Number: US-ABBVIE-6375557

PATIENT
  Age: 80 Year
  Sex: Female

DRUGS (1)
  1. RESTASIS [Suspect]
     Active Substance: CYCLOSPORINE
     Indication: Dry eye
     Route: 047
     Dates: start: 202507

REACTIONS (8)
  - Dysphonia [Unknown]
  - Vision blurred [Unknown]
  - Increased upper airway secretion [Unknown]
  - Foreign body sensation in eyes [Unknown]
  - Product container issue [Unknown]
  - Arthritis [Unknown]
  - Eye irritation [Unknown]
  - Asthenopia [Unknown]

NARRATIVE: CASE EVENT DATE: 20250101
